FAERS Safety Report 7982161-0 (Version None)
Quarter: 2011Q4

REPORT INFORMATION
  Report Type: 
  Country: None (occurrence: None)
  Receive Date: 20111212
  Receipt Date: 20111206
  Transmission Date: 20120403
  Serious: Yes (Life-Threatening, Hospitalization, Other)
  Sender: FDA-Public Use
  Company Number: 2009-198042-NL

PATIENT
  Age: 22 Year
  Sex: Female
  Weight: 72.5755 kg

DRUGS (3)
  1. NUVARING [Suspect]
     Indication: CONTRACEPTION
     Dosage: 1 DF;QM;VAG
     Route: 067
     Dates: start: 20060826, end: 20070626
  2. IBUPROFEN [Concomitant]
  3. CHLOROQUINE [Concomitant]

REACTIONS (18)
  - CHLAMYDIA TEST POSITIVE [None]
  - ABDOMINAL DISCOMFORT [None]
  - PULMONARY EMBOLISM [None]
  - ABDOMINAL PAIN LOWER [None]
  - MUSCLE STRAIN [None]
  - TREMOR [None]
  - STRESS [None]
  - NERVOUSNESS [None]
  - DEPRESSION [None]
  - VENOUS INSUFFICIENCY [None]
  - DEEP VEIN THROMBOSIS [None]
  - TELANGIECTASIA [None]
  - MENORRHAGIA [None]
  - VARICOSE VEIN [None]
  - OVARIAN CYST [None]
  - GENITAL PAIN [None]
  - MUSCULOSKELETAL CHEST PAIN [None]
  - ABDOMINAL PAIN [None]
